FAERS Safety Report 5799277-X (Version None)
Quarter: 2008Q3

REPORT INFORMATION
  Report Type: 
  Country: None (occurrence: None)
  Receive Date: 20080702
  Receipt Date: 20080624
  Transmission Date: 20090109
  Serious: Yes (Other)
  Sender: FDA-Public Use
  Company Number: JP-PFIZER INC-2008050887

PATIENT
  Sex: Male

DRUGS (3)
  1. XALATAN [Suspect]
     Indication: OPEN ANGLE GLAUCOMA
     Route: 047
     Dates: start: 20080513, end: 20080624
  2. DETANTOL [Concomitant]
     Route: 031
     Dates: start: 20060117, end: 20080513
  3. HYALEIN [Concomitant]
     Route: 031
     Dates: start: 20001122

REACTIONS (3)
  - ASTHENOPIA [None]
  - HEADACHE [None]
  - VISUAL FIELD DEFECT [None]
